FAERS Safety Report 7808674-X (Version None)
Quarter: 2011Q4

REPORT INFORMATION
  Report Type: 
  Country: None (occurrence: None)
  Receive Date: 20111012
  Receipt Date: 20110930
  Transmission Date: 20120403
  Serious: Yes (Other)
  Sender: FDA-Public Use
  Company Number: HR-RANBAXY-2011RR-48824

PATIENT
  Age: 31 Year
  Sex: Female

DRUGS (19)
  1. GABAPENTIN [Suspect]
     Indication: PAIN
     Dosage: 300 MG, TID
     Route: 065
     Dates: start: 20090401
  2. TRAMADOL HYDROCHLORIDE AND ACETAMINOPHEN [Suspect]
     Indication: PAIN
     Dosage: 2 DF, TID
     Route: 065
     Dates: start: 20070901
  3. TRAMADOL HYDROCHLORIDE AND ACETAMINOPHEN [Suspect]
     Dosage: 2 DF, TID
     Route: 065
     Dates: start: 20090401
  4. SERTRALINE HYDROCHLORIDE [Suspect]
     Indication: PAIN
     Dosage: 1 DF, QD
     Route: 065
     Dates: start: 20080501
  5. ESOMEPRAZOLE SODIUM [Suspect]
     Indication: PAIN
     Dosage: 20 MG, BID
     Route: 065
     Dates: start: 20100301
  6. BACLOFEN [Suspect]
     Dosage: UNK
     Route: 065
     Dates: start: 20090401
  7. BACLOFEN [Suspect]
     Dosage: UNK
     Route: 065
     Dates: start: 20100301
  8. DIAZEPAM [Suspect]
     Indication: PAIN
     Dosage: 5 MG, QD
     Route: 065
     Dates: start: 20070901
  9. CARBAMAZEPINE [Suspect]
     Indication: PAIN
     Dosage: 200 MG, TID
     Route: 065
     Dates: start: 20070901
  10. SERTRALINE HYDROCHLORIDE [Suspect]
     Dosage: 50 MG, QD
     Route: 065
     Dates: start: 20090401
  11. BACLOFEN [Suspect]
     Indication: PAIN
     Dosage: 10 MG, TID
     Route: 065
     Dates: start: 20070901
  12. TRAMADOL HYDROCHLORIDE AND ACETAMINOPHEN [Suspect]
     Dosage: 2 DF, TID
     Route: 065
     Dates: start: 20080501
  13. OXYCODONE HCL [Suspect]
     Indication: PAIN
     Dosage: 10 MG, TID
     Route: 065
     Dates: start: 20090401
  14. OXYCODONE HCL [Suspect]
     Dosage: 10 MG, UNK
     Route: 065
     Dates: start: 20100301
  15. BUPRENORPHINE [Suspect]
     Indication: PAIN
     Dosage: 70 UG/72H
     Route: 065
     Dates: start: 20090401
  16. PREGABALIN [Suspect]
     Indication: PAIN
     Dosage: 300 MG, BID
     Route: 065
     Dates: start: 20100301
  17. BACLOFEN [Suspect]
     Dosage: 25 MG, TID
     Route: 065
     Dates: start: 20080501
  18. FENTANYL [Suspect]
     Indication: PAIN
     Dosage: 100 UG/72H
     Route: 065
     Dates: start: 20100301
  19. TRAMADOL HYDROCHLORIDE AND ACETAMINOPHEN [Suspect]
     Dosage: UNK
     Route: 065
     Dates: start: 20100301

REACTIONS (16)
  - SYNCOPE [None]
  - ATAXIA [None]
  - OEDEMA [None]
  - ASTHENIA [None]
  - DIZZINESS [None]
  - VOMITING [None]
  - GASTROINTESTINAL MOTILITY DISORDER [None]
  - DIPLOPIA [None]
  - DRUG INTERACTION [None]
  - CONFUSIONAL STATE [None]
  - NAUSEA [None]
  - PRURITUS [None]
  - CONSTIPATION [None]
  - FATIGUE [None]
  - SEDATION [None]
  - HEADACHE [None]
